FAERS Safety Report 15056651 (Version 1)
Quarter: 2018Q2

REPORT INFORMATION
  Report Type: Spontaneous
  Country: MX (occurrence: MX)
  Receive Date: 20180604
  Receipt Date: 20180604
  Transmission Date: 20180711
  Serious: Yes (Disabling)
  Sender: FDA-Public Use
  Company Number: None

PATIENT
  Age: 43 Year
  Sex: Female
  Weight: 55 kg

DRUGS (1)
  1. FLUONING LEVOFLOXACINO [Suspect]
     Active Substance: LEVOFLOXACIN
     Indication: GASTRIC INFECTION
     Dosage: ?          QUANTITY:1 TABLET(S);?
     Route: 048

REACTIONS (4)
  - Impaired work ability [None]
  - Arthralgia [None]
  - Inflammation [None]
  - Mobility decreased [None]

NARRATIVE: CASE EVENT DATE: 20180526
